FAERS Safety Report 4414944-8 (Version None)
Quarter: 2004Q3

REPORT INFORMATION
  Report Type: 
  Country: None (occurrence: None)
  Receive Date: 20040804
  Receipt Date: 20040305
  Transmission Date: 20050211
  Serious: Yes (Hospitalization)
  Sender: FDA-Public Use
  Company Number: FR-BRISTOL-MYERS SQUIBB COMPANY-12525358

PATIENT
  Age: 65 Year
  Sex: Female

DRUGS (4)
  1. ABATACEPT [Suspect]
     Indication: RHEUMATOID ARTHRITIS
     Dosage: THERAPY INTERRUPTED, LAST DOSE 05-FEB-2004, NO. OF COURSES: 13
     Route: 042
     Dates: start: 20030403
  2. METHOTREXATE [Suspect]
     Indication: RHEUMATOID ARTHRITIS
     Route: 030
     Dates: start: 20020901, end: 20040226
  3. ETANERCEPT [Suspect]
     Indication: RENAL TRANSPLANT
     Route: 058
     Dates: start: 20020601, end: 20040302
  4. CORTANCYL [Concomitant]
     Route: 048
     Dates: start: 20020801

REACTIONS (1)
  - RHEUMATOID VASCULITIS [None]
